FAERS Safety Report 20351840 (Version 11)
Quarter: 2023Q4

REPORT INFORMATION
  Report Type: Spontaneous
  Country: JP (occurrence: JP)
  Receive Date: 20220119
  Receipt Date: 20231012
  Transmission Date: 20240110
  Serious: Yes (Death, Life-Threatening, Hospitalization, Other)
  Sender: FDA-Public Use
  Company Number: JP-BRISTOL-MYERS SQUIBB COMPANY-BMS-2021-085634

PATIENT
  Age: 53 Year
  Sex: Male
  Weight: 50.1 kg

DRUGS (6)
  1. OPDIVO [Suspect]
     Active Substance: NIVOLUMAB
     Indication: Malignant melanoma
     Dosage: 240 MG, Q2W
     Route: 041
     Dates: start: 20210426, end: 20210816
  2. OLOPATADINE HYDROCHLORIDE [Concomitant]
     Active Substance: OLOPATADINE HYDROCHLORIDE
     Indication: Product used for unknown indication
     Dosage: UNK
     Route: 048
  3. CARBOCYSTEINE [Concomitant]
     Active Substance: CARBOCYSTEINE
     Indication: Product used for unknown indication
     Dosage: UNK
     Route: 048
  4. RAMATROBAN [Concomitant]
     Active Substance: RAMATROBAN
     Indication: Product used for unknown indication
     Dosage: UNK
     Route: 048
  5. MOMETASONE [Concomitant]
     Active Substance: MOMETASONE
     Indication: Product used for unknown indication
     Dosage: UNK
     Route: 045
  6. HEPARININ [Concomitant]
     Indication: Product used for unknown indication
     Dosage: UNK
     Dates: end: 20210929

REACTIONS (7)
  - Gastric ulcer [Not Recovered/Not Resolved]
  - Immune-mediated gastritis [Not Recovered/Not Resolved]
  - Immune-mediated pancreatitis [Not Recovered/Not Resolved]
  - Immune-mediated cholangitis [Fatal]
  - Duodenal stenosis [Not Recovered/Not Resolved]
  - Cytomegalovirus gastritis [Not Recovered/Not Resolved]
  - Multiple organ dysfunction syndrome [Fatal]

NARRATIVE: CASE EVENT DATE: 20210814
